FAERS Safety Report 5837934-7 (Version None)
Quarter: 2008Q3

REPORT INFORMATION
  Report Type: 
  Country: None (occurrence: None)
  Receive Date: 20080808
  Receipt Date: 20080804
  Transmission Date: 20090109
  Serious: Yes (Hospitalization)
  Sender: FDA-Public Use
  Company Number: DE-WYE-G01875908

PATIENT
  Sex: Female
  Weight: 50 kg

DRUGS (8)
  1. TREVILOR RETARD [Suspect]
     Route: 048
  2. TREVILOR RETARD [Suspect]
     Dosage: AMOUNT 600 MG
     Route: 048
     Dates: start: 20080716, end: 20080716
  3. DOXEPIN HCL [Suspect]
     Dosage: UNKNOWN
     Route: 048
  4. QUETIAPINE FUMARATE [Suspect]
     Dosage: UNKNOWN
     Route: 048
  5. LITHIUM CARBONATE [Suspect]
     Dosage: UNKNOWN
     Route: 048
  6. OXYCODONE HCL [Suspect]
     Dosage: UNKNOWN
     Route: 048
  7. DIAZEPAM [Suspect]
     Dosage: UNKNOWN
     Route: 048
  8. LAMOTRIGINE [Suspect]
     Dosage: UNKNOWN
     Route: 048

REACTIONS (4)
  - ACCIDENTAL OVERDOSE [None]
  - DIZZINESS [None]
  - DYSARTHRIA [None]
  - INCORRECT DOSE ADMINISTERED [None]
